FAERS Safety Report 8202357-2 (Version None)
Quarter: 2012Q1

REPORT INFORMATION
  Report Type: 
  Country: None (occurrence: None)
  Receive Date: 20120312
  Receipt Date: 20110831
  Transmission Date: 20120608
  Serious: No
  Sender: FDA-Public Use
  Company Number: US-ABBOTT-11P-163-0729855-00

PATIENT
  Sex: Female
  Weight: 68.554 kg

DRUGS (2)
  1. DEPAKOTE [Suspect]
     Dosage: TAKES 250 MG 4 TIMES A WEEK
     Dates: start: 20090101
  2. DEPAKOTE [Suspect]
     Indication: BIPOLAR DISORDER
     Dates: start: 20060101

REACTIONS (5)
  - WEIGHT INCREASED [None]
  - THYROID DISORDER [None]
  - DYSPHAGIA [None]
  - DYSPEPSIA [None]
  - IMPAIRED GASTRIC EMPTYING [None]
